FAERS Safety Report 11312023 (Version 1)
Quarter: 2015Q3

REPORT INFORMATION
  Report Type: Spontaneous
  Country: US (occurrence: None)
  Receive Date: 20150724
  Receipt Date: 20150724
  Transmission Date: 20151125
  Serious: No
  Sender: FDA-Public Use
  Company Number: None

PATIENT
  Age: 49 Year
  Sex: Female

DRUGS (10)
  1. FLUTICASONE SALMETEROL [Suspect]
     Active Substance: FLUTICASONE PROPIONATE\SALMETEROL XINAFOATE
     Indication: CHRONIC OBSTRUCTIVE PULMONARY DISEASE
     Dosage: 250/50 MCG
     Route: 055
     Dates: start: 20150201, end: 20150402
  2. EMTRICITABINE + TENOFOVIR [Concomitant]
     Active Substance: EMTRICITABINE\TENOFOVIR
  3. GABAPENTIN. [Concomitant]
     Active Substance: GABAPENTIN
  4. RIVAROXABAN [Concomitant]
     Active Substance: RIVAROXABAN
  5. RITONAVIR. [Concomitant]
     Active Substance: RITONAVIR
  6. DARBUNAVIR [Concomitant]
  7. FUROSEMIDE. [Concomitant]
     Active Substance: FUROSEMIDE
  8. LOSARTAN. [Concomitant]
     Active Substance: LOSARTAN
  9. ALBUTEROL. [Concomitant]
     Active Substance: ALBUTEROL
  10. INSULIN [Concomitant]
     Active Substance: INSULIN NOS

REACTIONS (6)
  - Arthralgia [None]
  - Drug interaction [None]
  - Oedema peripheral [None]
  - Joint abscess [None]
  - Osteomyelitis [None]
  - Lipohypertrophy [None]

NARRATIVE: CASE EVENT DATE: 20150331
